FAERS Safety Report 10019262 (Version 1)
Quarter: 2014Q1

REPORT INFORMATION
  Report Type: Spontaneous
  Country: FR (occurrence: FR)
  Receive Date: 20140318
  Receipt Date: 20140318
  Transmission Date: 20141002
  Serious: Yes (Hospitalization, Congenital Anomaly)
  Sender: FDA-Public Use
  Company Number: FR-PFIZER INC-2014070870

PATIENT
  Sex: Female
  Weight: 2.54 kg

DRUGS (4)
  1. EFFEXOR [Suspect]
     Dosage: 160 MG, 1X/DAY
     Route: 064
  2. ZYPREXA [Suspect]
     Dosage: 15 MG, 1X/DAY
     Route: 064
  3. LEVOTHYROX [Concomitant]
     Dosage: 200 UG, 1X/DAY
     Route: 064
  4. INSULIN [Concomitant]
     Indication: GESTATIONAL DIABETES
     Dosage: UNK

REACTIONS (2)
  - Foetal exposure during pregnancy [Not Recovered/Not Resolved]
  - Multiple congenital abnormalities [Not Recovered/Not Resolved]
